FAERS Safety Report 14318070 (Version 1)
Quarter: 2017Q4

REPORT INFORMATION
  Report Type: Spontaneous
  Country: PT (occurrence: PT)
  Receive Date: 20171222
  Receipt Date: 20171222
  Transmission Date: 20180321
  Serious: Yes (Hospitalization, Other)
  Sender: FDA-Public Use
  Company Number: PT-TEVA-2017-PT-834137

PATIENT
  Age: 67 Year
  Sex: Male

DRUGS (2)
  1. SPIRONOLACTONE. [Suspect]
     Active Substance: SPIRONOLACTONE
     Indication: OEDEMA
     Dosage: DOSAGE WAS REDUCED TO HALF THE DOSAGE.
     Route: 048
  2. FUROSEMIDE. [Suspect]
     Active Substance: FUROSEMIDE
     Indication: OEDEMA
     Dosage: THERE WAS A HALVING OF THE DOSAGE.
     Route: 048

REACTIONS (3)
  - Blood urea increased [Unknown]
  - Blood creatinine increased [Unknown]
  - Renal injury [Unknown]

NARRATIVE: CASE EVENT DATE: 20170222
